FAERS Safety Report 7444508-3 (Version None)
Quarter: 2011Q2

REPORT INFORMATION
  Report Type: 
  Country: None (occurrence: None)
  Receive Date: 20110427
  Receipt Date: 20110427
  Transmission Date: 20111010
  Serious: Yes (Death)
  Sender: FDA-Public Use
  Company Number: None

PATIENT
  Sex: Male
  Weight: 70 kg

DRUGS (1)
  1. SODIUM CHLORIDE 0.9% [Suspect]
     Indication: HYPONATRAEMIA
     Dosage: 1150 ML OVER 22 HOURS IV DRIP
     Route: 041
     Dates: start: 20070817, end: 20070818

REACTIONS (3)
  - ADVERSE DRUG REACTION [None]
  - BLOOD GLUCOSE DECREASED [None]
  - OSMOTIC DEMYELINATION SYNDROME [None]
